FAERS Safety Report 4757425-4 (Version None)
Quarter: 2005Q3

REPORT INFORMATION
  Report Type: 
  Country: None (occurrence: None)
  Receive Date: 20050829
  Receipt Date: 20050816
  Transmission Date: 20060218
  Serious: Yes (Other)
  Sender: FDA-Public Use
  Company Number: 2005117129

PATIENT
  Age: 68 Year
  Sex: Male
  Weight: 59.8748 kg

DRUGS (2)
  1. XALATAN [Suspect]
     Indication: GLAUCOMA
     Dosage: 1 DROP IN EACH EYE DAILY (1 DROP), OPHTHALMIC
     Route: 047
     Dates: start: 20020101
  2. PYGEUM AFRICANUM [Concomitant]

REACTIONS (3)
  - PARKINSON'S DISEASE [None]
  - POST PROCEDURAL COMPLICATION [None]
  - VISION BLURRED [None]
